FAERS Safety Report 21557029 (Version 3)
Quarter: 2022Q4

REPORT INFORMATION
  Report Type: Report from Study
  Country: US (occurrence: US)
  Receive Date: 20221104
  Receipt Date: 20221122
  Transmission Date: 20230113
  Serious: Yes (Hospitalization, Other)
  Sender: FDA-Public Use
  Company Number: US-BRISTOL-MYERS SQUIBB COMPANY-2022-128804

PATIENT
  Age: 71 Year
  Sex: Female
  Weight: 54.8 kg

DRUGS (4)
  1. FLUDARABINE [Concomitant]
     Active Substance: FLUDARABINE PHOSPHATE
     Indication: Mantle cell lymphoma
     Route: 042
     Dates: start: 20180824, end: 20180826
  2. CYCLOPHOSPHAMIDE [Concomitant]
     Active Substance: CYCLOPHOSPHAMIDE
     Indication: Mantle cell lymphoma
     Route: 042
     Dates: start: 20180824, end: 20180826
  3. Covid-19 mRNA [Concomitant]
     Indication: COVID-19 prophylaxis
     Dosage: 1ST DOSE
     Route: 030
     Dates: start: 20210101
  4. Covid-19 mRNA [Concomitant]
     Dosage: SECOND DOSE
     Route: 030
     Dates: start: 202105

REACTIONS (1)
  - COVID-19 pneumonia [Recovered/Resolved]

NARRATIVE: CASE EVENT DATE: 20210916
